FAERS Safety Report 6739316-2 (Version None)
Quarter: 2010Q2

REPORT INFORMATION
  Report Type: 
  Country: None (occurrence: None)
  Receive Date: 20100521
  Receipt Date: 20100511
  Transmission Date: 20101027
  Serious: Yes (Other)
  Sender: FDA-Public Use
  Company Number: 1000013619

PATIENT
  Age: 51 Year
  Sex: Male

DRUGS (6)
  1. CITALOPRAM HYDROBROMIDE [Suspect]
     Dosage: 10 MG (10 MG, 1 IN 1 D), ORAL
     Route: 048
     Dates: start: 20081021, end: 20081027
  2. CIATYL-(Z) [Suspect]
     Indication: HELICOBACTER GASTRITIS
     Dosage: 20 MG (20 MG, 1 IN 1 D), ORAL
     Route: 048
     Dates: start: 20080925, end: 20081014
  3. CIATYL-(Z) [Suspect]
     Indication: HELICOBACTER GASTRITIS
     Dosage: 15 MG (15 MG, 1 IN 1 D), ORAL
     Route: 048
     Dates: start: 20081017, end: 20081026
  4. CIATYL-(Z) [Suspect]
     Indication: HELICOBACTER GASTRITIS
     Dosage: 5 MG (5 MG, 1 IN 1 D), ORAL
     Route: 048
     Dates: start: 20081028, end: 20081102
  5. DIPIPERON [Suspect]
     Dosage: ORAL
     Route: 048
     Dates: start: 20081021, end: 20081222
  6. AKINETON [Concomitant]

REACTIONS (2)
  - FALL [None]
  - PLEUROTHOTONUS [None]
